FAERS Safety Report 13962997 (Version 1)
Quarter: 2017Q3

REPORT INFORMATION
  Report Type: Spontaneous
  Country: GB (occurrence: GB)
  Receive Date: 20170913
  Receipt Date: 20170913
  Transmission Date: 20171128
  Serious: Yes (Other)
  Sender: FDA-Public Use
  Company Number: GB-009507513-1709GBR004520

PATIENT
  Sex: Female

DRUGS (1)
  1. ETONOGESTREL IMPLANT- UNKNOWN [Suspect]
     Active Substance: ETONOGESTREL
     Dosage: THE IMPLANT, UNK
     Route: 059
     Dates: start: 2010

REACTIONS (4)
  - Complication associated with device [Unknown]
  - Device difficult to use [Not Recovered/Not Resolved]
  - General anaesthesia [Unknown]
  - Incorrect drug administration duration [Unknown]
